FAERS Safety Report 9553180 (Version 1)
Quarter: 2013Q3

REPORT INFORMATION
  Report Type: Spontaneous
  Country: US (occurrence: None)
  Receive Date: 20130724
  Receipt Date: 20130724
  Transmission Date: 20140515
  Serious: Yes (Other)
  Sender: FDA-Public Use
  Company Number: PHEH2013US008249

PATIENT
  Age: 54 Year
  Sex: Female
  Weight: 87.5 kg

DRUGS (10)
  1. GLEEVEC (IMATINIB) [Suspect]
     Dates: start: 201206
  2. LISINOPRIL [Concomitant]
  3. GLYBURIDE (GLIBENCLAMIDE) [Concomitant]
  4. METFORMIN [Concomitant]
  5. ESTROGEN (ESTRADIOL) [Concomitant]
  6. LANTUS (INSULIN GLARGINE) [Concomitant]
  7. FENOFIBRATE [Concomitant]
  8. TRIAMTERENE [Concomitant]
  9. PRAVASTATIN [Concomitant]
  10. ESTRATST (ESTROGENS ESTERIFIED, METHYLTESTOSTERONE) [Concomitant]

REACTIONS (2)
  - Neoplasm recurrence [None]
  - White blood cell count increased [None]
